FAERS Safety Report 24363750 (Version 1)
Quarter: 2024Q3

REPORT INFORMATION
  Report Type: Spontaneous
  Country: US (occurrence: US)
  Receive Date: 20240925
  Receipt Date: 20240925
  Transmission Date: 20241017
  Serious: No
  Sender: CALLIDITAS THERAPEUTICS
  Company Number: US-Calliditas-2024CAL01336

PATIENT
  Age: 63 Year
  Sex: Male

DRUGS (3)
  1. TARPEYO [Suspect]
     Active Substance: BUDESONIDE
     Indication: Haematuria
     Route: 048
     Dates: start: 20240624
  2. ROSUVASTATIN [Concomitant]
     Active Substance: ROSUVASTATIN\ROSUVASTATIN CALCIUM
  3. SELENIUM [Concomitant]
     Active Substance: SELENIUM

REACTIONS (12)
  - Blood pressure increased [Recovered/Resolved]
  - Headache [Recovering/Resolving]
  - Weight increased [Recovered/Resolved]
  - Rash pruritic [Recovering/Resolving]
  - Swelling face [Not Recovered/Not Resolved]
  - Agitation [Recovering/Resolving]
  - Alanine aminotransferase increased [Not Recovered/Not Resolved]
  - White blood cell count increased [Not Recovered/Not Resolved]
  - Platelet count decreased [Not Recovered/Not Resolved]
  - Urine protein/creatinine ratio increased [Not Recovered/Not Resolved]
  - Glycosylated haemoglobin increased [Not Recovered/Not Resolved]
  - Goitre [Unknown]

NARRATIVE: CASE EVENT DATE: 20240701
